FAERS Safety Report 6094561-7 (Version None)
Quarter: 2009Q1

REPORT INFORMATION
  Report Type: 
  Country: None (occurrence: None)
  Receive Date: 20090226
  Receipt Date: 20090223
  Transmission Date: 20090719
  Serious: Yes (Hospitalization)
  Sender: FDA-Public Use
  Company Number: US-B.I. PHARMACEUTICALS,INC./RIDGEFIELD-2009-BP-02294BP

PATIENT
  Age: 61 Year
  Sex: Female

DRUGS (4)
  1. MICARDIS [Suspect]
     Indication: HYPERTENSION
     Dosage: 40MG
     Route: 048
     Dates: start: 20070101
  2. VERAPAMIL [Concomitant]
     Indication: HYPERTENSION
  3. SYNTHROID [Concomitant]
     Indication: HYPOTHYROIDISM
  4. CYMBALTA [Concomitant]
     Indication: DEPRESSION

REACTIONS (4)
  - BLOOD PRESSURE INCREASED [None]
  - HYDRONEPHROSIS [None]
  - NEPHRECTOMY [None]
  - NERVE COMPRESSION [None]
